FAERS Safety Report 16524524 (Version 3)
Quarter: 2019Q3

REPORT INFORMATION
  Report Type: Report from Study
  Country: JP (occurrence: JP)
  Receive Date: 20190703
  Receipt Date: 20190715
  Transmission Date: 20191004
  Serious: Yes (Other)
  Sender: FDA-Public Use
  Company Number: JP-PFIZER INC-2016267669

PATIENT
  Age: 34 Year
  Sex: Female

DRUGS (6)
  1. SIROLIMUS. [Suspect]
     Active Substance: SIROLIMUS
     Indication: LYMPHANGIOLEIOMYOMATOSIS
     Dosage: 1 MG, DAILY
     Route: 048
     Dates: start: 201502
  2. SIROLIMUS. [Suspect]
     Active Substance: SIROLIMUS
     Indication: HEPATITIS B
     Dosage: 2 MG, DAILY
     Route: 048
     Dates: start: 201508
  3. OXYGEN. [Concomitant]
     Active Substance: OXYGEN
     Indication: HYPOXIA
  4. LEUPRORELIN ACETATE [Concomitant]
     Active Substance: LEUPROLIDE ACETATE
     Indication: PLEURAL EFFUSION
     Dosage: 1.88 MG, UNK (SIX TIMES EVERY 4 WEEKS VIA HYPODERMIC INJECTION)
     Dates: start: 2014
  5. ENTECAVIR. [Concomitant]
     Active Substance: ENTECAVIR
     Indication: HEPATITIS B
     Dosage: 0.5 MG, DAILY
     Route: 048
     Dates: start: 2014
  6. OXYGEN. [Concomitant]
     Active Substance: OXYGEN
     Indication: DYSPNOEA
     Dosage: UNK (LONG-TERM OXYGEN THERAPY (LTOT))

REACTIONS (4)
  - Chylothorax [Recovering/Resolving]
  - Stomatitis [Recovered/Resolved]
  - Diarrhoea [Recovered/Resolved]
  - Stomatitis [Unknown]

NARRATIVE: CASE EVENT DATE: 20150221
